FAERS Safety Report 9412662 (Version 1)
Quarter: 2013Q3

REPORT INFORMATION
  Report Type: Spontaneous
  Country: BR (occurrence: BR)
  Receive Date: 20130722
  Receipt Date: 20130722
  Transmission Date: 20140515
  Serious: Yes (Other)
  Sender: FDA-Public Use
  Company Number: BR-PFIZER INC-2013208413

PATIENT
  Age: 58 Year
  Sex: Male

DRUGS (1)
  1. ZOLTEC [Suspect]
     Indication: FUNGAL INFECTION
     Dosage: 150 MG, WEEKLY
     Route: 048
     Dates: start: 20110508

REACTIONS (3)
  - Renal cancer [Unknown]
  - Pain of skin [Not Recovered/Not Resolved]
  - Skin burning sensation [Not Recovered/Not Resolved]
